FAERS Safety Report 6831501-4 (Version None)
Quarter: 2010Q3

REPORT INFORMATION
  Report Type: 
  Country: None (occurrence: None)
  Receive Date: 20100712
  Receipt Date: 20100628
  Transmission Date: 20110219
  Serious: Yes (Other)
  Sender: FDA-Public Use
  Company Number: PHHY2010JP34746

PATIENT
  Age: 59 Year
  Sex: Male

DRUGS (5)
  1. DIOVAN [Suspect]
     Indication: HYPERTENSION
     Dosage: 80 MG, QD
     Route: 048
     Dates: start: 20100504, end: 20100527
  2. SEDIEL [Concomitant]
     Dosage: UNK
     Route: 048
  3. NOVORAPID [Concomitant]
     Dosage: UNK
     Route: 058
  4. METHYCOBAL [Concomitant]
     Dosage: UNK
     Route: 048
  5. BASEN [Concomitant]
     Dosage: UNK

REACTIONS (2)
  - HYPONATRAEMIA [None]
  - INAPPROPRIATE ANTIDIURETIC HORMONE SECRETION [None]
